FAERS Safety Report 19685662 (Version 1)
Quarter: 2021Q3

REPORT INFORMATION
  Report Type: Spontaneous
  Country: FR (occurrence: FR)
  Receive Date: 20210811
  Receipt Date: 20210811
  Transmission Date: 20211014
  Serious: Yes (Other)
  Sender: FDA-Public Use
  Company Number: FR-PFIZER INC-202100983131

PATIENT
  Age: 16 Year
  Sex: Female

DRUGS (15)
  1. VINCRISTINE SULFATE. [Suspect]
     Active Substance: VINCRISTINE SULFATE
     Dosage: 2 MG
     Route: 042
     Dates: start: 20210512, end: 20210512
  2. CYTARABINE. [Suspect]
     Active Substance: CYTARABINE
     Indication: PRECURSOR T-LYMPHOBLASTIC LYMPHOMA/LEUKAEMIA
     Dosage: UNK
     Route: 051
     Dates: start: 20210409, end: 20210603
  3. VINCRISTINE SULFATE. [Suspect]
     Active Substance: VINCRISTINE SULFATE
     Dosage: 2 MG
     Route: 042
     Dates: start: 20210617, end: 20210617
  4. ASPARAGINASE [Suspect]
     Active Substance: ASPARAGINASE
     Dosage: 3900 IU
     Route: 042
     Dates: start: 20210610, end: 20210610
  5. METHOTREXATE SODIUM. [Suspect]
     Active Substance: METHOTREXATE SODIUM
     Dosage: 15 MG
     Route: 037
     Dates: start: 20210521, end: 20210521
  6. ASPARAGINASE [Suspect]
     Active Substance: ASPARAGINASE
     Indication: PRECURSOR T-LYMPHOBLASTIC LYMPHOMA/LEUKAEMIA
     Dosage: 3950 IU
     Route: 042
     Dates: start: 20210505, end: 20210505
  7. PRIMPERAN [Concomitant]
     Active Substance: METOCLOPRAMIDE HYDROCHLORIDE
     Indication: PROPHYLAXIS OF NAUSEA AND VOMITING
     Dosage: 10 MG, 3X/DAY
     Route: 048
     Dates: end: 20210528
  8. MERCAPTOPURINE. [Suspect]
     Active Substance: MERCAPTOPURINE
     Indication: PRECURSOR T-LYMPHOBLASTIC LYMPHOMA/LEUKAEMIA
     Dosage: 95 MG, CYCLIC (IN CYCLES OF 4 DAYS)
     Route: 048
     Dates: start: 20210407, end: 20210604
  9. PLITICAN [Suspect]
     Active Substance: ALIZAPRIDE HYDROCHLORIDE
     Indication: PROPHYLAXIS OF NAUSEA AND VOMITING
     Dosage: 100 MG, 1X/DAY
     Route: 042
     Dates: start: 20210407, end: 20210706
  10. VINCRISTINE SULFATE. [Suspect]
     Active Substance: VINCRISTINE SULFATE
     Dosage: 2 MG
     Route: 042
     Dates: start: 20210610, end: 20210610
  11. VINCRISTINE SULFATE. [Suspect]
     Active Substance: VINCRISTINE SULFATE
     Dosage: 2 MG
     Route: 042
     Dates: start: 20210505, end: 20210505
  12. HYDROCORTISONE. [Suspect]
     Active Substance: HYDROCORTISONE
     Indication: PRECURSOR T-LYMPHOBLASTIC LYMPHOMA/LEUKAEMIA
     Dosage: 30 MG (15 MG LE 09/04 ET LE 21/05)
     Route: 037
     Dates: start: 20210409, end: 20210521
  13. METHOTREXATE SODIUM. [Suspect]
     Active Substance: METHOTREXATE SODIUM
     Indication: PRECURSOR T-LYMPHOBLASTIC LYMPHOMA/LEUKAEMIA
     Dosage: 15 MG
     Route: 037
     Dates: start: 20210409, end: 20210409
  14. ENANTONE LP [Suspect]
     Active Substance: LEUPROLIDE ACETATE
     Indication: CONTRACEPTION
     Dosage: 1 DF, EVERY 3 MONTHS
     Route: 058
     Dates: start: 20210407
  15. CYCLOPHOSPHAMIDE. [Suspect]
     Active Substance: CYCLOPHOSPHAMIDE
     Indication: PRECURSOR T-LYMPHOBLASTIC LYMPHOMA/LEUKAEMIA
     Dosage: 3140 MG (1560 MG LE 07/04 ET 1580 MG LE 19/05)
     Route: 042
     Dates: start: 20210407, end: 20210519

REACTIONS (1)
  - Cholestasis [Recovered/Resolved]

NARRATIVE: CASE EVENT DATE: 20210528
